FAERS Safety Report 7033142-5 (Version None)
Quarter: 2010Q4

REPORT INFORMATION
  Report Type: 
  Country: None (occurrence: None)
  Receive Date: 20101004
  Receipt Date: 20100916
  Transmission Date: 20110411
  Serious: Yes (Death, Hospitalization)
  Sender: FDA-Public Use
  Company Number: 2010003982

PATIENT
  Age: 74 Year
  Sex: Female

DRUGS (2)
  1. TARCEVA [Suspect]
     Indication: PANCREATIC CARCINOMA
     Dosage: ORAL
     Route: 048
     Dates: start: 20100601
  2. TAXOTERE [Suspect]
     Indication: PANCREATIC CARCINOMA
     Dosage: PARENTERAL
     Route: 051
     Dates: start: 20100601, end: 20100630

REACTIONS (8)
  - ASTHENIA [None]
  - DECREASED APPETITE [None]
  - DIARRHOEA [None]
  - DISEASE PROGRESSION [None]
  - DYSPNOEA [None]
  - ESCHERICHIA INFECTION [None]
  - FATIGUE [None]
  - GASTROINTESTINAL FISTULA [None]
